FAERS Safety Report 17074349 (Version 1)
Quarter: 2019Q4

REPORT INFORMATION
  Report Type: Spontaneous
  Country: GB (occurrence: GB)
  Receive Date: 20191126
  Receipt Date: 20191126
  Transmission Date: 20200122
  Serious: Yes (Other)
  Sender: FDA-Public Use
  Company Number: GB-TEVA-2019-GB-1140912

PATIENT
  Age: 54 Year
  Sex: Female
  Weight: 104 kg

DRUGS (6)
  1. LIDOCAINE. [Suspect]
     Active Substance: LIDOCAINE
     Dosage: 20MG/2ML
     Dates: start: 201910
  2. CORTISONE [Suspect]
     Active Substance: CORTISONE
     Dates: start: 201910
  3. LORATADINE. [Concomitant]
     Active Substance: LORATADINE
     Dosage: 1 DOSAGE FORMS DAILY; 1 DOSAGE FORMS, ONE TO BE TAKEN ONCE A DAY
     Dates: start: 20191021
  4. COCODAMOL [Concomitant]
     Active Substance: ACETAMINOPHEN\CODEINE PHOSPHATE
     Dosage: TAKE 1 OR 2 4 TIMES/DAY
     Dates: start: 20190701
  5. NAPROXEN. [Concomitant]
     Active Substance: NAPROXEN
     Dosage: 2 DOSAGE FORMS PER DAY, WITH FOOD
     Dates: start: 20190701
  6. LANSOPRAZOLE. [Concomitant]
     Active Substance: LANSOPRAZOLE
     Dosage: 1 DOSAGE FORM PER DAY
     Dates: start: 20180802

REACTIONS (1)
  - Rash [Unknown]
